FAERS Safety Report 8623730-4 (Version None)
Quarter: 2012Q3

REPORT INFORMATION
  Report Type: 
  Country: None (occurrence: None)
  Receive Date: 20120824
  Receipt Date: 20120824
  Transmission Date: 20120928
  Serious: Yes (Disabling)
  Sender: FDA-Public Use
  Company Number: None

PATIENT
  Age: 52 Year
  Sex: Female
  Weight: 44.4525 kg

DRUGS (1)
  1. RECLAST [Suspect]
     Indication: OSTEOPOROSIS
     Dosage: 5MG, ONCE, IV DRIP
     Route: 041
     Dates: start: 20120505, end: 20120505

REACTIONS (8)
  - ACUTE PHASE REACTION [None]
  - JOINT STIFFNESS [None]
  - ARTHRALGIA [None]
  - PAIN [None]
  - MYALGIA [None]
  - JOINT EFFUSION [None]
  - PYREXIA [None]
  - MALAISE [None]
